FAERS Safety Report 4832552-1 (Version None)
Quarter: 2005Q4

REPORT INFORMATION
  Report Type: 
  Country: None (occurrence: None)
  Receive Date: 20051117
  Receipt Date: 20051104
  Transmission Date: 20060501
  Serious: Yes (Hospitalization)
  Sender: FDA-Public Use
  Company Number: 2005BI020273

PATIENT
  Age: 57 Year
  Sex: Male
  Weight: 59.8748 kg

DRUGS (5)
  1. AVONEX [Suspect]
     Indication: MULTIPLE SCLEROSIS
     Dosage: 30 UG; QW; IM
     Route: 030
     Dates: start: 19990101, end: 20030101
  2. AVONEX [Suspect]
     Indication: MULTIPLE SCLEROSIS
     Dosage: 30 UG; QW; IM
     Route: 030
     Dates: start: 20030101
  3. BACLOFEN [Concomitant]
  4. XANAX [Concomitant]
  5. DILANTIN [Concomitant]

REACTIONS (10)
  - ARTHRALGIA [None]
  - BLOOD IRON DECREASED [None]
  - DYSPHASIA [None]
  - DYSURIA [None]
  - INTERVERTEBRAL DISC PROTRUSION [None]
  - NEOPLASM MALIGNANT [None]
  - PAIN [None]
  - PROCEDURAL PAIN [None]
  - PROSTATIC DISORDER [None]
  - SPINAL COLUMN STENOSIS [None]
